FAERS Safety Report 12921231 (Version 1)
Quarter: 2016Q4

REPORT INFORMATION
  Report Type: Spontaneous
  Country: US (occurrence: US)
  Receive Date: 20161107
  Receipt Date: 20161107
  Transmission Date: 20170207
  Serious: No
  Sender: FDA-Public Use
  Company Number: US-TARO-2016TAR00516

PATIENT
  Age: 75 Year
  Sex: Female
  Weight: 69.84 kg

DRUGS (5)
  1. CARBAMAZEPINE TABLETS USP 200 MG [Suspect]
     Active Substance: CARBAMAZEPINE
     Indication: BURNING MOUTH SYNDROME
     Dosage: 200 MG, 2X/DAY
     Route: 048
     Dates: end: 201605
  2. CARBAMAZEPINE TABLETS USP 200 MG [Suspect]
     Active Substance: CARBAMAZEPINE
     Dosage: 200 MG, 3X/DAY
     Route: 048
     Dates: start: 201605
  3. CAPTOPRIL. [Concomitant]
     Active Substance: CAPTOPRIL
     Dosage: 25 MG, 1X/DAY
  4. LAMOTRIGINE. [Concomitant]
     Active Substance: LAMOTRIGINE
     Dosage: 100 MG, 4X/DAY
  5. CLOPIDOGREL BISULFATE. [Concomitant]
     Active Substance: CLOPIDOGREL BISULFATE
     Dosage: 75 MG, 1X/DAY

REACTIONS (1)
  - Paraesthesia oral [Not Recovered/Not Resolved]

NARRATIVE: CASE EVENT DATE: 201605
